FAERS Safety Report 6735284-8 (Version None)
Quarter: 2010Q2

REPORT INFORMATION
  Report Type: 
  Country: None (occurrence: None)
  Receive Date: 20100520
  Receipt Date: 20100520
  Transmission Date: 20101027
  Serious: Yes (Other)
  Sender: FDA-Public Use
  Company Number: None

PATIENT
  Age: 71 Year
  Sex: Female
  Weight: 54.4316 kg

DRUGS (6)
  1. ACTONEL THERAPY [Suspect]
     Indication: BONE DENSITY DECREASED
     Dosage: 150 MG Q MONTH BY MOUTH
     Route: 048
     Dates: start: 20100205
  2. ACTONEL THERAPY [Suspect]
     Indication: BONE DENSITY DECREASED
     Dosage: 150 MG Q MONTH BY MOUTH
     Route: 048
     Dates: start: 20100305
  3. PROZAC [Concomitant]
  4. ZELCOR [Concomitant]
  5. ADVAIR DISKUS 100/50 [Concomitant]
  6. SPIRIVA [Concomitant]

REACTIONS (11)
  - ACTIVITIES OF DAILY LIVING IMPAIRED [None]
  - ARTHRALGIA [None]
  - CHEST PAIN [None]
  - CHILLS [None]
  - GASTROOESOPHAGEAL REFLUX DISEASE [None]
  - INFLUENZA LIKE ILLNESS [None]
  - MALAISE [None]
  - MYALGIA [None]
  - NAUSEA [None]
  - NECK PAIN [None]
  - NO THERAPEUTIC RESPONSE [None]
